FAERS Safety Report 17439975 (Version 1)
Quarter: 2020Q1

REPORT INFORMATION
  Report Type: Spontaneous
  Country: US (occurrence: US)
  Receive Date: 20200220
  Receipt Date: 20200220
  Transmission Date: 20200409
  Serious: Yes (Other)
  Sender: FDA-Public Use
  Company Number: US-PFIZER INC-2020074205

PATIENT
  Age: 49 Year
  Sex: Female
  Weight: 52.15 kg

DRUGS (2)
  1. PREMARIN [Suspect]
     Active Substance: ESTROGENS, CONJUGATED
     Indication: BONE DISORDER
  2. PREMARIN [Suspect]
     Active Substance: ESTROGENS, CONJUGATED
     Indication: OSTEOPENIA
     Dosage: 0.9 MG, DAILY
     Route: 048
     Dates: start: 1987

REACTIONS (8)
  - Hyperhidrosis [Not Recovered/Not Resolved]
  - Fibromyalgia [Not Recovered/Not Resolved]
  - Pain [Not Recovered/Not Resolved]
  - Uterine haemorrhage [Recovering/Resolving]
  - Vulvovaginal dryness [Not Recovered/Not Resolved]
  - Fall [Unknown]
  - Pruritus [Unknown]
  - Vulvovaginal discomfort [Not Recovered/Not Resolved]

NARRATIVE: CASE EVENT DATE: 1999
